FAERS Safety Report 8223648-5 (Version None)
Quarter: 2012Q1

REPORT INFORMATION
  Report Type: 
  Country: None (occurrence: None)
  Receive Date: 20120321
  Receipt Date: 20120309
  Transmission Date: 20120608
  Serious: Yes (Other)
  Sender: FDA-Public Use
  Company Number: US-BAYER-2012-025642

PATIENT
  Sex: Female

DRUGS (1)
  1. YASMIN [Suspect]
     Dosage: UNK

REACTIONS (7)
  - BILIARY COLIC [None]
  - NAUSEA [None]
  - DYSPEPSIA [None]
  - ABDOMINAL PAIN UPPER [None]
  - PALPITATIONS [None]
  - WEIGHT DECREASED [None]
  - GALLBLADDER DISORDER [None]
